FAERS Safety Report 7209376-3 (Version None)
Quarter: 2011Q1

REPORT INFORMATION
  Report Type: 
  Country: None (occurrence: None)
  Receive Date: 20110104
  Receipt Date: 20101227
  Transmission Date: 20110831
  Serious: Yes (Death, Other)
  Sender: FDA-Public Use
  Company Number: US-TEVA-261442USA

PATIENT
  Age: 64 Year
  Sex: Female

DRUGS (5)
  1. BEVACIZUMAB [Suspect]
     Indication: CHEMOTHERAPY
  2. CARMUSTINE [Suspect]
  3. IRINOTECAN HYDROCHLORIDE [Suspect]
     Indication: CHEMOTHERAPY
  4. IRINOTECAN HYDROCHLORIDE [Suspect]
     Indication: DISEASE PROGRESSION
  5. BEVACIZUMAB [Suspect]
     Indication: DISEASE PROGRESSION

REACTIONS (2)
  - INTRACRANIAL HYPOTENSION [None]
  - COMA [None]
